FAERS Safety Report 25899982 (Version 1)
Quarter: 2025Q4

REPORT INFORMATION
  Report Type: Spontaneous
  Country: EU (occurrence: EU)
  Receive Date: 20251009
  Receipt Date: 20251009
  Transmission Date: 20260118
  Serious: Yes (Life-Threatening)
  Sender: ACCORD
  Company Number: None

PATIENT
  Age: 66 Year
  Sex: Male
  Weight: 60 kg

DRUGS (2)
  1. OXALIPLATIN [Suspect]
     Active Substance: OXALIPLATIN
     Indication: Product used for unknown indication
     Dosage: DOSE OF 112.84 EVERY 21 DAYS
     Dates: start: 20250328, end: 20250825
  2. FLUOROURACIL [Concomitant]
     Active Substance: FLUOROURACIL
     Indication: Gastric cancer
     Dosage: 400 MG/M2 EVERY 14 DAYS
     Dates: start: 20250328

REACTIONS (1)
  - Respiration abnormal [Recovered/Resolved]

NARRATIVE: CASE EVENT DATE: 20250825
